FAERS Safety Report 25129856 (Version 1)
Quarter: 2025Q1

REPORT INFORMATION
  Report Type: Spontaneous
  Country: JP (occurrence: JP)
  Receive Date: 20250327
  Receipt Date: 20250327
  Transmission Date: 20250409
  Serious: Yes (Hospitalization)
  Sender: MERCK SHARP & DOHME LLC
  Company Number: JP-MSD-M2025-03169

PATIENT
  Sex: Female

DRUGS (3)
  1. KEYTRUDA [Suspect]
     Active Substance: PEMBROLIZUMAB
     Indication: Cervix carcinoma
     Route: 041
  2. CARBOPLATIN [Concomitant]
     Active Substance: CARBOPLATIN
     Indication: Cervix carcinoma
     Route: 065
     Dates: end: 20250110
  3. PACLITAXEL [Concomitant]
     Active Substance: PACLITAXEL
     Indication: Cervix carcinoma
     Route: 065
     Dates: end: 20250110

REACTIONS (3)
  - Atrioventricular block complete [Recovered/Resolved]
  - Rash erythematous [Recovered/Resolved]
  - Immune-mediated myositis [Not Recovered/Not Resolved]

NARRATIVE: CASE EVENT DATE: 20250119
